FAERS Safety Report 16231295 (Version 3)
Quarter: 2019Q4

REPORT INFORMATION
  Report Type: Spontaneous
  Country: US (occurrence: US)
  Receive Date: 20190424
  Receipt Date: 20191029
  Transmission Date: 20200122
  Serious: Yes (Other)
  Sender: FDA-Public Use
  Company Number: US-ASTRAZENECA-2019SE09763

PATIENT
  Sex: Female

DRUGS (19)
  1. GENTAMICIN. [Concomitant]
     Active Substance: GENTAMICIN
  2. MELOXICAM. [Concomitant]
     Active Substance: MELOXICAM
  3. PROPRANOLOL [Concomitant]
     Active Substance: PROPRANOLOL HYDROCHLORIDE
  4. ALPRAZOLAM. [Concomitant]
     Active Substance: ALPRAZOLAM
  5. GLIMEPIRIDE. [Concomitant]
     Active Substance: GLIMEPIRIDE
  6. PROVENTIL HFA [Concomitant]
     Active Substance: ALBUTEROL SULFATE
  7. PROPRANOLOL [Concomitant]
     Active Substance: PROPRANOLOL HYDROCHLORIDE
  8. POTASSIUM CHLORIDE. [Concomitant]
     Active Substance: POTASSIUM CHLORIDE
  9. QUINAPRIL. [Concomitant]
     Active Substance: QUINAPRIL
  10. VOLTAREN [Concomitant]
     Active Substance: DICLOFENAC SODIUM
  11. CLONIDINE. [Concomitant]
     Active Substance: CLONIDINE
  12. NEXIUM [Suspect]
     Active Substance: ESOMEPRAZOLE MAGNESIUM
     Route: 048
     Dates: start: 20070101, end: 20180730
  13. AMLODIPINE BESYLATE. [Concomitant]
     Active Substance: AMLODIPINE BESYLATE
  14. FERREX [Concomitant]
     Active Substance: FERRIC POLYSACCHARIDE COMPLEX
  15. NEXIUM [Suspect]
     Active Substance: ESOMEPRAZOLE MAGNESIUM
     Dosage: VARIOUS YEARS AND DATES
     Route: 048
  16. ALPRAZOLAM. [Concomitant]
     Active Substance: ALPRAZOLAM
  17. QUINAPRIL. [Concomitant]
     Active Substance: QUINAPRIL
  18. FUROSEMIDE. [Concomitant]
     Active Substance: FUROSEMIDE
  19. GLYBURIDE/METFORMIN [Concomitant]
     Active Substance: GLYBURIDE\METFORMIN

REACTIONS (6)
  - Nephrogenic anaemia [Unknown]
  - Renal failure [Unknown]
  - Rebound acid hypersecretion [Unknown]
  - Acute kidney injury [Unknown]
  - Chronic kidney disease [Unknown]
  - Renal injury [Unknown]
